FAERS Safety Report 5010674-2 (Version None)
Quarter: 2006Q2

REPORT INFORMATION
  Report Type: 
  Country: None (occurrence: None)
  Receive Date: 20060525
  Receipt Date: 20060517
  Transmission Date: 20061013
  Serious: Yes (Other)
  Sender: FDA-Public Use
  Company Number: PHEH2006US06492

PATIENT
  Age: 72 Year
  Sex: Female

DRUGS (3)
  1. EXJADE [Suspect]
     Indication: BLOOD IRON INCREASED
     Dosage: 500 MG, TID
     Route: 048
     Dates: start: 20060512, end: 20060515
  2. VALPROIC ACID [Concomitant]
  3. VIDAZA [Concomitant]

REACTIONS (4)
  - HYPERSENSITIVITY [None]
  - PYREXIA [None]
  - RASH MORBILLIFORM [None]
  - RASH PRURITIC [None]
